FAERS Safety Report 23044573 (Version 1)
Quarter: 2023Q4

REPORT INFORMATION
  Report Type: Spontaneous
  Country: US (occurrence: US)
  Receive Date: 20231009
  Receipt Date: 20231009
  Transmission Date: 20240110
  Serious: No
  Sender: FDA-Public Use
  Company Number: US-BAUSCH-BL-2023-014708

PATIENT
  Age: 23 Year
  Sex: Male

DRUGS (4)
  1. XIFAXAN [Suspect]
     Active Substance: RIFAXIMIN
     Indication: Gastrointestinal bacterial overgrowth
     Route: 065
     Dates: start: 202308, end: 2023
  2. XIFAXAN [Suspect]
     Active Substance: RIFAXIMIN
     Indication: Product use in unapproved indication
  3. XIFAXAN [Suspect]
     Active Substance: RIFAXIMIN
     Indication: Gastrointestinal bacterial overgrowth
     Route: 065
  4. XIFAXAN [Suspect]
     Active Substance: RIFAXIMIN
     Indication: Product use in unapproved indication

REACTIONS (3)
  - Drug ineffective for unapproved indication [Unknown]
  - Product prescribing issue [Unknown]
  - Product prescribing error [Unknown]

NARRATIVE: CASE EVENT DATE: 20230801
